FAERS Safety Report 9413107 (Version 2)
Quarter: 2013Q3

REPORT INFORMATION
  Report Type: Spontaneous
  Country: BR (occurrence: BR)
  Receive Date: 20130722
  Receipt Date: 20130814
  Transmission Date: 20140515
  Serious: Yes (Other)
  Sender: FDA-Public Use
  Company Number: BR-BRISTOL-MYERS SQUIBB COMPANY-19120302

PATIENT
  Age: 73 Year
  Sex: Male

DRUGS (5)
  1. KOMBIGLYZE XR [Suspect]
     Indication: DIABETES MELLITUS
     Dosage: 1DF:2.5 MG +1000 MG INCREASED TO 5 MG +1000 MG
     Route: 048
     Dates: start: 20130601
  2. AMIODARONE [Concomitant]
     Dates: start: 200401
  3. CARVEDILOL [Concomitant]
     Dates: start: 200401
  4. ATORVASTATIN [Concomitant]
     Dates: start: 200401
  5. AMLODIPINE [Concomitant]
     Dates: start: 200401

REACTIONS (2)
  - Blindness [Unknown]
  - Drug ineffective [Unknown]
